FAERS Safety Report 15689438 (Version 1)
Quarter: 2018Q4

REPORT INFORMATION
  Report Type: Spontaneous
  Country: ES (occurrence: ES)
  Receive Date: 20181205
  Receipt Date: 20181205
  Transmission Date: 20190205
  Serious: Yes (Other)
  Sender: FDA-Public Use
  Company Number: ES-GLAXOSMITHKLINE-ES2018218112

PATIENT
  Age: 68 Year
  Sex: Female
  Weight: 81 kg

DRUGS (2)
  1. VENTOLIN [Suspect]
     Active Substance: ALBUTEROL SULFATE
     Indication: ASTHMA
     Dosage: UNK
     Route: 055
     Dates: start: 20181101, end: 20181114
  2. TERBASMIN [Interacting]
     Active Substance: TERBUTALINE SULFATE
     Indication: ASTHMA
     Dosage: UNK
     Route: 055
     Dates: start: 20181101, end: 20181114

REACTIONS (2)
  - Drug interaction [Unknown]
  - Dyspnoea [Unknown]

NARRATIVE: CASE EVENT DATE: 201811
